FAERS Safety Report 6159730-6 (Version None)
Quarter: 2009Q2

REPORT INFORMATION
  Report Type: 
  Country: None (occurrence: None)
  Receive Date: 20090420
  Receipt Date: 20090403
  Transmission Date: 20091009
  Serious: Yes (Hospitalization)
  Sender: FDA-Public Use
  Company Number: JP-BAYER-200910789BYL

PATIENT
  Age: 67 Year
  Sex: Female
  Weight: 62 kg

DRUGS (18)
  1. BAY43-9006 [Suspect]
     Indication: HEPATIC NEOPLASM MALIGNANT
     Dosage: TOTAL DAILY DOSE: 800 MG  UNIT DOSE: 400 MG
     Route: 048
     Dates: start: 20081031, end: 20090315
  2. BAY43-9006 [Suspect]
     Dosage: TOTAL DAILY DOSE: 800 MG  UNIT DOSE: 200 MG
     Route: 048
     Dates: start: 20080215, end: 20081025
  3. PREDONINE [Suspect]
     Indication: AUTOIMMUNE HEPATITIS
     Dosage: TOTAL DAILY DOSE: 5 MG
     Route: 048
     Dates: start: 20061213
  4. URSO 250 [Concomitant]
     Indication: HEPATITIS
     Dosage: TOTAL DAILY DOSE: 300 MG
     Route: 048
     Dates: start: 20061213
  5. OMEPRAL [Concomitant]
     Indication: GASTRITIS
     Dosage: TOTAL DAILY DOSE: 20 MG
     Route: 048
     Dates: start: 20090220
  6. ADALAT [Concomitant]
     Indication: HYPERTENSION
     Dosage: TOTAL DAILY DOSE: 20 MG
     Route: 048
     Dates: start: 20061213
  7. FOSAMAC 5MG [Concomitant]
     Indication: OSTEOPOROSIS
     Dosage: TOTAL DAILY DOSE: 5 MG  UNIT DOSE: 5 MG
     Route: 048
     Dates: start: 20071213
  8. ONEALFA [Concomitant]
     Indication: OSTEOPOROSIS
     Dosage: TOTAL DAILY DOSE: 0.5 ?G
     Route: 048
     Dates: start: 20071213
  9. NOVORAPID [Concomitant]
     Indication: DIABETES MELLITUS
     Route: 058
     Dates: start: 20070216, end: 20090316
  10. NOVORAPID [Concomitant]
     Dosage: 16-56 IU
     Route: 058
     Dates: start: 20090325
  11. NOVORAPID [Concomitant]
     Route: 058
     Dates: start: 20090325, end: 20090326
  12. NOVOLIN R [Concomitant]
     Indication: DIABETES MELLITUS
     Dosage: TOTAL DAILY DOSE: 4 IU
     Route: 058
     Dates: start: 20070216, end: 20090316
  13. FLOMOX [Concomitant]
     Indication: ANTIBIOTIC THERAPY
     Dosage: TOTAL DAILY DOSE: 500 MG
     Route: 048
     Dates: start: 20090310, end: 20090316
  14. BIOFERMIN [Concomitant]
     Indication: GASTROINTESTINAL DISORDER THERAPY
     Dosage: TOTAL DAILY DOSE: 3 G
     Route: 048
     Dates: start: 20090310, end: 20090316
  15. SOLYUGEN F [Concomitant]
     Indication: FLUID REPLACEMENT
     Route: 042
     Dates: start: 20090316, end: 20090316
  16. AMINOLEBAN [Concomitant]
     Indication: HEPATIC FUNCTION ABNORMAL
     Route: 042
     Dates: start: 20090317, end: 20090328
  17. AMINOLEBAN [Concomitant]
     Route: 042
     Dates: start: 20090402
  18. LEVEMIR [Concomitant]
     Indication: DIABETES MELLITUS
     Dosage: 4-8 IU/DAY
     Route: 058
     Dates: start: 20090316

REACTIONS (2)
  - LIVER CARCINOMA RUPTURED [None]
  - PERIHEPATIC ABSCESS [None]
